FAERS Safety Report 5247227-7 (Version None)
Quarter: 2007Q1

REPORT INFORMATION
  Report Type: 
  Country: None (occurrence: None)
  Receive Date: 20070226
  Receipt Date: 20070216
  Transmission Date: 20070707
  Serious: Yes (Hospitalization, Other)
  Sender: FDA-Public Use
  Company Number: FR-ABBOTT-07P-056-0359530-00

PATIENT
  Sex: Male
  Weight: 50 kg

DRUGS (8)
  1. KALETRA [Suspect]
     Indication: HIV INFECTION
     Route: 048
  2. KALETRA [Suspect]
  3. KALETRA [Suspect]
     Indication: HIV INFECTION
  4. INDINIVIR SULFATE [Concomitant]
     Indication: HIV INFECTION
     Route: 048
  5. BROMAZEPAM [Concomitant]
     Indication: DRUG USE FOR UNKNOWN INDICATION
     Route: 048
  6. BACTRIM [Concomitant]
     Indication: DRUG USE FOR UNKNOWN INDICATION
     Route: 048
  7. PHLOROGLUCINOL/TRIMETHYLPHLOROGLUCINOL [Concomitant]
     Indication: ABDOMINAL PAIN
     Route: 048
  8. ALPRAZOLAM [Concomitant]
     Indication: ANXIETY
     Route: 048

REACTIONS (15)
  - ABNORMAL BEHAVIOUR [None]
  - AGGRESSION [None]
  - ANXIETY [None]
  - ASTHENIA [None]
  - CACHEXIA [None]
  - CD4 LYMPHOCYTES DECREASED [None]
  - DELIRIUM [None]
  - HALLUCINATION [None]
  - HALLUCINATION, AUDITORY [None]
  - MALAISE [None]
  - PAIN IN EXTREMITY [None]
  - SPEECH DISORDER [None]
  - TREATMENT NONCOMPLIANCE [None]
  - VIRAL LOAD INCREASED [None]
  - VISION BLURRED [None]
